FAERS Safety Report 4487627-6 (Version None)
Quarter: 2004Q4

REPORT INFORMATION
  Report Type: 
  Country: None (occurrence: None)
  Receive Date: 20041027
  Receipt Date: 20041027
  Transmission Date: 20050328
  Serious: Yes (Hospitalization)
  Sender: FDA-Public Use
  Company Number: None

PATIENT
  Sex: Male
  Weight: 93.8946 kg

DRUGS (1)
  1. GATIFLOXACIN [Suspect]
     Indication: ENTEROCOCCAL INFECTION
     Dosage: 400 MG EVERY DAY ORAL
     Route: 048
     Dates: start: 20040831, end: 20040907

REACTIONS (2)
  - BLOOD GLUCOSE INCREASED [None]
  - BLOOD POTASSIUM INCREASED [None]
